FAERS Safety Report 23266987 (Version 1)
Quarter: 2023Q4

REPORT INFORMATION
  Report Type: Spontaneous
  Country: None (occurrence: PL)
  Receive Date: 20231206
  Receipt Date: 20231206
  Transmission Date: 20240110
  Serious: Yes (Hospitalization, Other)
  Sender: FDA-Public Use
  Company Number: PL-B.Braun Medical Inc.-2149021

PATIENT
  Age: 30 Year
  Sex: Female

DRUGS (9)
  1. CEFTRIAXONE SODIUM [Suspect]
     Active Substance: CEFTRIAXONE SODIUM
     Indication: Intestinal tuberculosis
  2. METRONIDAZOLE [Suspect]
     Active Substance: METRONIDAZOLE
  3. GENTAMICIN [Suspect]
     Active Substance: GENTAMICIN
  4. RIFAMPIN [Suspect]
     Active Substance: RIFAMPIN
  5. PYRAZINAMIDE [Suspect]
     Active Substance: PYRAZINAMIDE
  6. ISONIAZID [Suspect]
     Active Substance: ISONIAZID
  7. ETHAMBUTOL [Suspect]
     Active Substance: ETHAMBUTOL HYDROCHLORIDE
  8. OFLOXACIN [Suspect]
     Active Substance: OFLOXACIN
  9. AMOXICILLIN [Suspect]
     Active Substance: AMOXICILLIN

REACTIONS (6)
  - Drug ineffective [None]
  - Arthralgia [None]
  - Alopecia [None]
  - Liver injury [None]
  - Visual acuity reduced [None]
  - Optic neuritis [None]
